FAERS Safety Report 5725884-6 (Version None)
Quarter: 2008Q2

REPORT INFORMATION
  Report Type: 
  Country: None (occurrence: None)
  Receive Date: 20080429
  Receipt Date: 20080415
  Transmission Date: 20081010
  Serious: Yes (Hospitalization)
  Sender: FDA-Public Use
  Company Number: 2008AL002301

PATIENT
  Age: 2 Year
  Sex: Female

DRUGS (5)
  1. NAPROXEN [Suspect]
     Indication: MUSCULOSKELETAL STIFFNESS
     Dosage: PO
     Route: 048
  2. NAPROXEN [Suspect]
     Indication: PAIN
     Dosage: PO
     Route: 048
  3. METHOTREXATE [Concomitant]
  4. CORTICOSTEROIDS [Concomitant]
  5. FOLIC ACID [Concomitant]

REACTIONS (6)
  - HEPATITIS [None]
  - HEPATOMEGALY [None]
  - HEPATOTOXICITY [None]
  - HYPOGLYCAEMIA [None]
  - RESPIRATORY DISORDER [None]
  - THERAPEUTIC RESPONSE DECREASED [None]
